FAERS Safety Report 8376260-1 (Version None)
Quarter: 2012Q1

REPORT INFORMATION
  Report Type: 
  Country: None (occurrence: None)
  Receive Date: 20120323
  Receipt Date: 20110720
  Transmission Date: 20120608
  Serious: Yes (Other)
  Sender: FDA-Public Use
  Company Number: 163-21880-11072298

PATIENT
  Age: 60 Year
  Sex: Female

DRUGS (7)
  1. ASPIRIN [Concomitant]
  2. REVLIMID [Suspect]
     Indication: MULTIPLE MYELOMA
     Dosage: 25 MG, X21D/28, PO 10 MG, 1 IN 1 D, PO 5 MG, 1 IN 2 D, PO 10 MG, 1 IN 1 D, PO
     Route: 048
     Dates: start: 20080201, end: 20080501
  3. REVLIMID [Suspect]
     Indication: MULTIPLE MYELOMA
     Dosage: 25 MG, X21D/28, PO 10 MG, 1 IN 1 D, PO 5 MG, 1 IN 2 D, PO 10 MG, 1 IN 1 D, PO
     Route: 048
     Dates: start: 20110705, end: 20110701
  4. REVLIMID [Suspect]
     Indication: MULTIPLE MYELOMA
     Dosage: 25 MG, X21D/28, PO 10 MG, 1 IN 1 D, PO 5 MG, 1 IN 2 D, PO 10 MG, 1 IN 1 D, PO
     Route: 048
     Dates: start: 20110617
  5. REVLIMID [Suspect]
     Indication: MULTIPLE MYELOMA
     Dosage: 25 MG, X21D/28, PO 10 MG, 1 IN 1 D, PO 5 MG, 1 IN 2 D, PO 10 MG, 1 IN 1 D, PO
     Route: 048
     Dates: start: 20110719
  6. FAMOTIDINE [Concomitant]
  7. LORAZEPAM [Concomitant]

REACTIONS (4)
  - EYELID OEDEMA [None]
  - OCULAR HYPERAEMIA [None]
  - RASH MACULAR [None]
  - LACRIMATION INCREASED [None]
